FAERS Safety Report 9687132 (Version 2)
Quarter: 2013Q4

REPORT INFORMATION
  Report Type: Spontaneous
  Country: US (occurrence: US)
  Receive Date: 20131113
  Receipt Date: 20131113
  Transmission Date: 20140711
  Serious: Yes (Hospitalization, Other)
  Sender: FDA-Public Use
  Company Number: US-BAXTER-2013BAX042594

PATIENT
  Sex: Female

DRUGS (1)
  1. DIANEAL LOW CALCIUM [Suspect]
     Indication: PERITONEAL DIALYSIS
     Route: 033
     Dates: start: 201203

REACTIONS (5)
  - Hyperoxaluria [Recovering/Resolving]
  - Oxalosis [Recovering/Resolving]
  - Blindness [Recovering/Resolving]
  - Paralysis [Recovered/Resolved]
  - Seizure like phenomena [Recovered/Resolved]
